FAERS Safety Report 11880848 (Version 2)
Quarter: 2017Q2

REPORT INFORMATION
  Report Type: Report from Study
  Country: US (occurrence: US)
  Receive Date: 20151230
  Receipt Date: 20170425
  Transmission Date: 20170829
  Serious: Yes (Hospitalization)
  Sender: FDA-Public Use
  Company Number: US-ACTELION-A-US2015-128139

PATIENT
  Age: 66 Year
  Sex: Male
  Weight: 96.6 kg

DRUGS (3)
  1. WARFARIN [Concomitant]
     Active Substance: WARFARIN
  2. REVATIO [Concomitant]
     Active Substance: SILDENAFIL CITRATE
  3. OPSUMIT [Suspect]
     Active Substance: MACITENTAN
     Indication: PULMONARY ARTERIAL HYPERTENSION
     Dosage: 10 MG, QD
     Route: 048

REACTIONS (10)
  - Arrhythmia [Unknown]
  - Viral upper respiratory tract infection [Unknown]
  - Influenza [Unknown]
  - Chest pain [Unknown]
  - Oedema [Unknown]
  - Asthenia [Unknown]
  - Atrial fibrillation [Unknown]
  - Cardiac operation [Unknown]
  - Dyspnoea [Unknown]
  - Dizziness [Unknown]

NARRATIVE: CASE EVENT DATE: 201512
